FAERS Safety Report 5371087-7 (Version None)
Quarter: 2007Q2

REPORT INFORMATION
  Report Type: 
  Country: None (occurrence: None)
  Receive Date: 20070622
  Receipt Date: 20070612
  Transmission Date: 20071010
  Serious: Yes (Death, Life-Threatening)
  Sender: FDA-Public Use
  Company Number: 6034495

PATIENT
  Age: 13 Year
  Sex: Male

DRUGS (1)
  1. BISOPROLOL FUMARATE [Suspect]
     Indication: LONG QT SYNDROME

REACTIONS (4)
  - CARDIAC ARREST [None]
  - HEART ALTERNATION [None]
  - NERVOUS SYSTEM DISORDER [None]
  - VENTRICULAR ARRHYTHMIA [None]
